FAERS Safety Report 4571297-2 (Version None)
Quarter: 2005Q1

REPORT INFORMATION
  Report Type: 
  Country: None (occurrence: None)
  Receive Date: 20050202
  Receipt Date: 20050125
  Transmission Date: 20050727
  Serious: Yes (Death, Hospitalization, Other)
  Sender: FDA-Public Use
  Company Number: USA-2004-0017576

PATIENT
  Sex: Male

DRUGS (2)
  1. OXYCONTIN [Suspect]
     Indication: PAIN
  2. NORTRIPTYLINE HCL [Concomitant]

REACTIONS (9)
  - BLOOD CREATINE PHOSPHOKINASE INCREASED [None]
  - CARDIO-RESPIRATORY ARREST [None]
  - COMA [None]
  - CONVULSION [None]
  - DRUG DEPENDENCE [None]
  - DRUG SCREEN POSITIVE [None]
  - DRUG WITHDRAWAL SYNDROME [None]
  - GRAND MAL CONVULSION [None]
  - PYREXIA [None]
